FAERS Safety Report 8181187-4 (Version None)
Quarter: 2012Q1

REPORT INFORMATION
  Report Type: 
  Country: None (occurrence: None)
  Receive Date: 20120302
  Receipt Date: 20120228
  Transmission Date: 20120608
  Serious: Yes (Death, Hospitalization)
  Sender: FDA-Public Use
  Company Number: IT-GLAXOSMITHKLINE-B0651659A

PATIENT
  Sex: Male
  Weight: 102 kg

DRUGS (3)
  1. LAPATINIB [Suspect]
     Indication: GASTRIC CANCER
     Dosage: 1250MG PER DAY
     Route: 048
     Dates: start: 20100420, end: 20100430
  2. OXALIPLATIN [Suspect]
     Indication: GASTRIC CANCER
     Dosage: 130MGM2 CYCLIC
     Route: 042
     Dates: start: 20100420, end: 20100430
  3. CAPECITABINE [Suspect]
     Indication: GASTRIC CANCER
     Dosage: 1700MGM2 TWICE PER DAY
     Route: 048
     Dates: start: 20100420, end: 20100430

REACTIONS (4)
  - OLIGURIA [None]
  - DYSPNOEA [None]
  - OEDEMA PERIPHERAL [None]
  - PNEUMONIA ASPIRATION [None]
